FAERS Safety Report 17062535 (Version 2)
Quarter: 2020Q1

REPORT INFORMATION
  Report Type: Report from Study
  Country: DE (occurrence: DE)
  Receive Date: 20191122
  Receipt Date: 20200130
  Transmission Date: 20200409
  Serious: Yes (Hospitalization)
  Sender: FDA-Public Use
  Company Number: DE-BIOGEN-2019BI00808564

PATIENT
  Age: 34 Year
  Sex: Female

DRUGS (1)
  1. TYSABRI [Suspect]
     Active Substance: NATALIZUMAB
     Indication: MULTIPLE SCLEROSIS
     Route: 065
     Dates: start: 20130816, end: 20191114

REACTIONS (1)
  - Ovarian cancer stage IV [Not Recovered/Not Resolved]

NARRATIVE: CASE EVENT DATE: 20191106
